FAERS Safety Report 8452663-1 (Version None)
Quarter: 2012Q2

REPORT INFORMATION
  Report Type: 
  Country: None (occurrence: None)
  Receive Date: 20120620
  Receipt Date: 20120615
  Transmission Date: 20120825
  Serious: Yes (Other)
  Sender: FDA-Public Use
  Company Number: PHEH2012US012057

PATIENT
  Sex: Female

DRUGS (9)
  1. VITAMIN D [Concomitant]
  2. FOLIC ACID [Concomitant]
  3. CALCIUM CARBONATE [Concomitant]
  4. RANITIDINE [Concomitant]
     Dosage: 75 MG, UNK
  5. VESICARE [Concomitant]
  6. RECLAST [Suspect]
     Dosage: UNK UKN, UNK
     Route: 042
     Dates: start: 20120510
  7. BENICAR [Concomitant]
  8. AMLODIPINE [Concomitant]
     Dosage: 2.5 MG, UNK
  9. IMBREL [Concomitant]

REACTIONS (7)
  - THORACIC VERTEBRAL FRACTURE [None]
  - FEELING ABNORMAL [None]
  - ASTHENIA [None]
  - PYREXIA [None]
  - COUGH [None]
  - NAUSEA [None]
  - DECREASED APPETITE [None]
